FAERS Safety Report 10747387 (Version 1)
Quarter: 2015Q1

REPORT INFORMATION
  Report Type: Spontaneous
  Country: US (occurrence: US)
  Receive Date: 20150129
  Receipt Date: 20150129
  Transmission Date: 20150721
  Serious: Yes (Hospitalization)
  Sender: FDA-Public Use
  Company Number: US-BIOGENIDEC-2015BI009139

PATIENT
  Age: 38 Year
  Sex: Female

DRUGS (1)
  1. TYSABRI [Suspect]
     Active Substance: NATALIZUMAB
     Indication: MULTIPLE SCLEROSIS
     Route: 042
     Dates: start: 20130204

REACTIONS (6)
  - Hypoaesthesia [Recovered/Resolved]
  - Paralysis [Recovered/Resolved]
  - Blindness [Recovered/Resolved]
  - Device related infection [Not Recovered/Not Resolved]
  - Joint dislocation [Not Recovered/Not Resolved]
  - Plasmapheresis [Not Recovered/Not Resolved]

NARRATIVE: CASE EVENT DATE: 201312
